FAERS Safety Report 6472038-4 (Version None)
Quarter: 2009Q4

REPORT INFORMATION
  Report Type: 
  Country: None (occurrence: None)
  Receive Date: 20091203
  Receipt Date: 20080613
  Transmission Date: 20100525
  Serious: Yes (Death)
  Sender: FDA-Public Use
  Company Number: NL-ELI_LILLY_AND_COMPANY-NL200804001171

PATIENT
  Sex: Female
  Weight: 80 kg

DRUGS (4)
  1. CYMBALTA [Suspect]
     Indication: DEPRESSION
     Dosage: 60 MG, UNKNOWN
     Route: 048
     Dates: start: 20061228, end: 20070801
  2. CYMBALTA [Suspect]
     Dosage: 90 MG, UNKNOWN
     Route: 065
     Dates: start: 20070801
  3. DURAGESIC-100 [Concomitant]
     Indication: ANALGESIC THERAPY
     Dosage: 100 UG, UNKNOWN
     Route: 065
     Dates: end: 20080106
  4. MORPHINE [Concomitant]
     Indication: ANALGESIC THERAPY
     Dosage: 4 MG, EVERY HOUR
     Route: 065
     Dates: start: 20080105, end: 20080106

REACTIONS (1)
  - NON-HODGKIN'S LYMPHOMA [None]
